FAERS Safety Report 8469579-7 (Version None)
Quarter: 2012Q2

REPORT INFORMATION
  Report Type: 
  Country: None (occurrence: None)
  Receive Date: 20120626
  Receipt Date: 20120622
  Transmission Date: 20120825
  Serious: Yes (Death)
  Sender: FDA-Public Use
  Company Number: US-GILEAD-2012-0055877

PATIENT
  Sex: Male

DRUGS (16)
  1. INSULIN GLARGINE [Concomitant]
  2. CETIRIZINE HCL [Concomitant]
  3. ISOSORBIDE [Concomitant]
  4. LETAIRIS [Suspect]
     Indication: PULMONARY HYPERTENSION
     Dosage: 5 MG, UNK
     Route: 048
     Dates: start: 20120331, end: 20120425
  5. ALBUTEROL [Concomitant]
  6. NIACIN [Concomitant]
  7. FENOFIBRATE [Concomitant]
  8. SOTALOL HYDROCHLORIDE [Concomitant]
  9. LASIX [Concomitant]
  10. ROSUVASTATIN [Concomitant]
  11. GLYBURIDE [Concomitant]
  12. LISINOPRIL [Concomitant]
  13. COUMADIN [Concomitant]
  14. SERTRALINE HYDROCHLORIDE [Concomitant]
  15. LETAIRIS [Suspect]
  16. ALLOPURINOL [Concomitant]

REACTIONS (5)
  - DYSPNOEA [None]
  - EXERCISE TOLERANCE DECREASED [None]
  - OEDEMA [None]
  - HYPOXIA [None]
  - VENTILATION PERFUSION MISMATCH [None]
